FAERS Safety Report 6585646-7 (Version None)
Quarter: 2010Q1

REPORT INFORMATION
  Report Type: 
  Country: None (occurrence: None)
  Receive Date: 20100217
  Receipt Date: 20100203
  Transmission Date: 20100710
  Serious: Yes (Life-Threatening, Hospitalization, Other)
  Sender: FDA-Public Use
  Company Number: US-MYLANLABS-2008S1005522

PATIENT
  Age: 11 Year
  Sex: Female
  Weight: 40.8 kg

DRUGS (9)
  1. AZATHIOPRINE [Suspect]
     Indication: CROHN'S DISEASE
     Route: 048
     Dates: start: 20020101, end: 20070101
  2. REMICADE [Suspect]
     Indication: CROHN'S DISEASE
     Route: 042
     Dates: start: 20031201, end: 20041001
  3. ADCAL-D3 [Concomitant]
     Indication: PROPHYLAXIS
     Route: 048
     Dates: start: 20030101
  4. CEFUROXIME [Concomitant]
     Indication: DRUG USE FOR UNKNOWN INDICATION
  5. DOMPERIDONE [Concomitant]
     Indication: NAUSEA
     Dates: start: 20040101, end: 20040101
  6. METRONIDAZOLE [Concomitant]
     Indication: DRUG USE FOR UNKNOWN INDICATION
  7. MESALAZINE [Concomitant]
     Indication: DRUG USE FOR UNKNOWN INDICATION
  8. PREDNISOLONE [Concomitant]
     Indication: CROHN'S DISEASE
  9. ASACOL [Concomitant]
     Indication: DRUG USE FOR UNKNOWN INDICATION

REACTIONS (2)
  - CROHN'S DISEASE [None]
  - MENINGITIS LISTERIA [None]
